FAERS Safety Report 14360691 (Version 1)
Quarter: 2018Q1

REPORT INFORMATION
  Report Type: Spontaneous
  Country: FR (occurrence: FR)
  Receive Date: 20180106
  Receipt Date: 20180106
  Transmission Date: 20180509
  Serious: Yes (Hospitalization)
  Sender: FDA-Public Use
  Company Number: FR-MYLANLABS-2018M1001353

PATIENT
  Age: 65 Year
  Sex: Female
  Weight: 47 kg

DRUGS (37)
  1. OXALIPLATIN. [Suspect]
     Active Substance: OXALIPLATIN
     Dosage: FOLFOX-BEVACIZUMAB CHEMOTHERAPY CYCLE 1-4
     Route: 041
  2. AVASTIN                            /00848101/ [Suspect]
     Active Substance: SIMVASTATIN
     Dosage: CYCLE 2 OF LV5FU2-BEVACIZUMAB
     Route: 041
  3. AVASTIN [Suspect]
     Active Substance: BEVACIZUMAB
     Indication: ADENOCARCINOMA OF COLON
     Route: 041
  4. FLUOROURACIL. [Concomitant]
     Active Substance: FLUOROURACIL
     Dosage: CYCLE 5 DAY 1 FOLFOX (WITHOUT BEVACIZUMAB
     Route: 065
  5. FLUOROURACIL. [Concomitant]
     Active Substance: FLUOROURACIL
     Dosage: 10 CYCLES OF FOLFIRI-BEVACIZUMAB
     Route: 065
  6. OXALIPLATIN. [Suspect]
     Active Substance: OXALIPLATIN
     Indication: PRODUCT USED FOR UNKNOWN INDICATION
     Dosage: CYCLE 6 DAY 1 FOLFOX-BEVACIZUMAB
     Route: 041
  7. OXALIPLATIN. [Suspect]
     Active Substance: OXALIPLATIN
     Dosage: 12 CYCLES OF FOLFOX-BEVACIZUMAB
     Route: 041
  8. FOLINIC ACID [Concomitant]
     Active Substance: LEUCOVORIN
     Dosage: LV5FU2-BEVACIZUMAB
     Route: 065
  9. AVASTIN                            /00848101/ [Suspect]
     Active Substance: SIMVASTATIN
     Dosage: 5 MG/KG, UNK
     Route: 041
  10. FLUOROURACIL. [Concomitant]
     Active Substance: FLUOROURACIL
     Dosage: 12 CYCLES OF FOLFOX
     Route: 065
  11. AVASTIN                            /00848101/ [Suspect]
     Active Substance: SIMVASTATIN
     Dosage: 12 CYCLES OF FOLFOX-BEVACIZUMAB
     Route: 041
  12. FLUOROURACIL. [Concomitant]
     Active Substance: FLUOROURACIL
     Dosage: 2 CYCLES OF LV5FU2-BEVACIZUMAB
     Route: 065
  13. FOLINIC ACID [Concomitant]
     Active Substance: LEUCOVORIN
     Dosage: 4 CYCLES OF FOLFOX-BEVACIZUMAB CHEMOTHERAPY
     Route: 065
  14. FOLINIC ACID [Concomitant]
     Active Substance: LEUCOVORIN
     Dosage: 12 CYCLES OF FOLFOX-BEVACIZUMAB
     Route: 065
  15. AVASTIN                            /00848101/ [Suspect]
     Active Substance: SIMVASTATIN
     Dosage: CYCLE 1 OF LV5FU2-BEVACIZUMAB
     Route: 041
  16. FLUOROURACIL. [Concomitant]
     Active Substance: FLUOROURACIL
     Indication: ADENOCARCINOMA OF COLON
     Dosage: 4 CYCLES OF FOLFOX-BEVACIZUMAB CHEMOTHERAPY
     Route: 065
  17. FLUOROURACIL. [Concomitant]
     Active Substance: FLUOROURACIL
     Dosage: CYCLE 2 OF LV5FU2-BEVACIZUMAB.
     Route: 065
  18. FLUOROURACIL. [Concomitant]
     Active Substance: FLUOROURACIL
     Route: 041
  19. FOLINIC ACID [Concomitant]
     Active Substance: LEUCOVORIN
     Dosage: CYCLE 2 OF LV5FU2-BEVACIZUMAB
     Route: 065
  20. FOLINIC ACID [Concomitant]
     Active Substance: LEUCOVORIN
     Dosage: CYCLE 5 DAY 1 FOLFOX (WITHOUT BEVACIZUMAB)
     Route: 065
  21. OXALIPLATIN. [Suspect]
     Active Substance: OXALIPLATIN
     Dosage: 60 ML/H
     Route: 041
  22. AVASTIN                            /00848101/ [Suspect]
     Active Substance: SIMVASTATIN
     Dosage: 3 CYCLES OF CAPECITABINE-BEVACIZUMAB
     Route: 041
  23. FLUOROURACIL. [Concomitant]
     Active Substance: FLUOROURACIL
     Dosage: CYCLE 6 DAY 1 FOLFOX-BEVACIZUMAB
     Route: 065
  24. FOLINIC ACID [Concomitant]
     Active Substance: LEUCOVORIN
     Dosage: 12 CYCLES OF FOLFOX
     Route: 065
  25. FOLINIC ACID [Concomitant]
     Active Substance: LEUCOVORIN
     Indication: ADENOCARCINOMA OF COLON
     Route: 041
  26. AVASTIN                            /00848101/ [Suspect]
     Active Substance: SIMVASTATIN
     Indication: ADENOCARCINOMA OF COLON
     Dosage: 10 CYCLES OF FOLFIRI-BEVACIZUMAB
     Route: 041
  27. AVASTIN                            /00848101/ [Suspect]
     Active Substance: SIMVASTATIN
     Dosage: 29 CYCLE AS MONOTHERAPY
     Route: 041
  28. FLUOROURACIL. [Concomitant]
     Active Substance: FLUOROURACIL
     Dosage: LV5FU2-BEVACIZUMAB
     Route: 065
  29. FOLINIC ACID [Concomitant]
     Active Substance: LEUCOVORIN
     Indication: ADENOCARCINOMA OF COLON
     Dosage: CYCLE 6 DAY 1 FOLFOX-BEVACIZUMAB
     Route: 065
  30. FOLINIC ACID [Concomitant]
     Active Substance: LEUCOVORIN
     Dosage: 2 CYCLES OF LV5FU2-BEVACIZUMAB
     Route: 065
  31. OXALIPLATIN. [Suspect]
     Active Substance: OXALIPLATIN
     Dosage: CYCLE 5 DAY 1 FOLFOX (WITHOUT BEVACIZUMAB)
     Route: 041
  32. OXALIPLATIN. [Suspect]
     Active Substance: OXALIPLATIN
     Dosage: 12 CYCLES OF FOLFOX
     Route: 041
  33. AVASTIN                            /00848101/ [Suspect]
     Active Substance: SIMVASTATIN
     Dosage: 2 CYCLES OF LV5FU2-BEVACIZUMAB
     Route: 041
  34. AVASTIN                            /00848101/ [Suspect]
     Active Substance: SIMVASTATIN
     Dosage: 4 CYCLES FOLFOX-BEVACIZUMAB CHEMOTHERAPY
     Route: 041
  35. OXALIPLATINE ACCORD [Suspect]
     Active Substance: OXALIPLATIN
     Indication: ADENOCARCINOMA OF COLON
     Route: 041
  36. FLUOROURACIL. [Concomitant]
     Active Substance: FLUOROURACIL
     Dosage: 12 CYCLES OF FOLFOX-BEVACIZUMAB
     Route: 065
  37. DEXAMETHASONE. [Concomitant]
     Active Substance: DEXAMETHASONE
     Indication: PRODUCT USED FOR UNKNOWN INDICATION

REACTIONS (9)
  - Throat tightness [Recovered/Resolved]
  - Proteinuria [Not Recovered/Not Resolved]
  - Hypertension [Not Recovered/Not Resolved]
  - Erythema [Recovered/Resolved]
  - Feeling hot [Recovered/Resolved]
  - Face oedema [Recovered/Resolved]
  - Vomiting [Recovered/Resolved]
  - Malaise [Recovered/Resolved]
  - Paraesthesia [Recovered/Resolved]

NARRATIVE: CASE EVENT DATE: 20170731
